FAERS Safety Report 4894398-8 (Version None)
Quarter: 2005Q4

REPORT INFORMATION
  Report Type: 
  Country: None (occurrence: None)
  Receive Date: 20051223
  Receipt Date: 20050901
  Transmission Date: 20060501
  Serious: No
  Sender: FDA-Public Use
  Company Number: 05P-163-0310085-00

PATIENT
  Age: 80 Year
  Sex: Female
  Weight: 70.3075 kg

DRUGS (12)
  1. HUMIRA [Suspect]
     Indication: RHEUMATOID ARTHRITIS
     Dosage: 40 MG, 1 IN 2 WK, SUBCUTANEOUS
     Route: 058
     Dates: start: 20030101
  2. SERTRALINE HYDROCHLORIDE [Concomitant]
  3. PANTOPRAZOLE [Concomitant]
  4. ATORVASTATIN CALCIUM [Concomitant]
  5. TOPROL [Concomitant]
  6. BENICAR [Concomitant]
  7. POTASSIUM [Concomitant]
  8. FOLIC ACID [Concomitant]
  9. ISOSORBIDE MONONITRATE [Concomitant]
  10. VITAMIN AND MINERAL PRENATAL SUPPLEMENT W/ FOLIC ACID CAP [Concomitant]
  11. GABAPENTIN [Concomitant]
  12. DIGOXIN [Concomitant]

REACTIONS (1)
  - ARTHRITIS [None]
